FAERS Safety Report 17484007 (Version 2)
Quarter: 2020Q2

REPORT INFORMATION
  Report Type: Spontaneous
  Country: FR (occurrence: FR)
  Receive Date: 20200302
  Receipt Date: 20200406
  Transmission Date: 20200713
  Serious: Yes (Hospitalization, Other)
  Sender: FDA-Public Use
  Company Number: NVSC2020FR058299

PATIENT
  Age: 57 Year
  Sex: Male
  Weight: 183 kg

DRUGS (7)
  1. RIVOTRIL [Concomitant]
     Active Substance: CLONAZEPAM
     Indication: PRODUCT USED FOR UNKNOWN INDICATION
     Dosage: 20 ML (DRINKABLE SOLUTION)
     Route: 065
  2. DULOXETINE. [Concomitant]
     Active Substance: DULOXETINE
     Indication: PRODUCT USED FOR UNKNOWN INDICATION
     Dosage: 60 MG
     Route: 065
  3. LOVENOX [Concomitant]
     Active Substance: ENOXAPARIN SODIUM
     Indication: PRODUCT USED FOR UNKNOWN INDICATION
     Dosage: 0.4 ML
     Route: 065
  4. TAFINLAR [Suspect]
     Active Substance: DABRAFENIB MESYLATE
     Indication: MALIGNANT MELANOMA
     Dosage: UNK
     Route: 065
     Dates: start: 20191019, end: 20200221
  5. MEKINIST [Suspect]
     Active Substance: TRAMETINIB DIMETHYL SULFOXIDE
     Indication: MALIGNANT MELANOMA
     Dosage: UNK
     Route: 065
     Dates: start: 20191019, end: 20200221
  6. CEFTRIAXONE. [Concomitant]
     Active Substance: CEFTRIAXONE
     Indication: PRODUCT USED FOR UNKNOWN INDICATION
     Dosage: 2 G
     Route: 041
  7. BEZAFIBRATE [Concomitant]
     Active Substance: BEZAFIBRATE
     Indication: PRODUCT USED FOR UNKNOWN INDICATION
     Dosage: 400 MG
     Route: 065

REACTIONS (16)
  - Polyneuropathy [Unknown]
  - Paraesthesia [Unknown]
  - Hypoaesthesia [Unknown]
  - Meningitis [Unknown]
  - Muscular weakness [Unknown]
  - Sensory processing disorder [Unknown]
  - Motor dysfunction [Unknown]
  - Pain [Unknown]
  - Back pain [Unknown]
  - Diplopia [Unknown]
  - Neuralgia [Unknown]
  - Dysmetria [Unknown]
  - Hyporeflexia [Unknown]
  - Dysaesthesia [Unknown]
  - Neuritis [Unknown]
  - Radiculopathy [Unknown]

NARRATIVE: CASE EVENT DATE: 202001
